FAERS Safety Report 8807411 (Version 2)
Quarter: 2012Q4

REPORT INFORMATION
  Report Type: 
  Country: US (occurrence: US)
  Receive Date: 20120925
  Receipt Date: 20121115
  Transmission Date: 20130627
  Serious: Yes (Hospitalization)
  Sender: FDA-Public Use
  Company Number: US-ELI_LILLY_AND_COMPANY-US201209004268

PATIENT
  Age: 87 Year
  Sex: Female
  Weight: 54.42 kg

DRUGS (7)
  1. FORTEO [Suspect]
     Indication: OSTEOPOROSIS
     Dosage: 20 u, qd
     Route: 058
     Dates: start: 201204
  2. FORTEO [Suspect]
     Dosage: 20 u, qd
     Dates: start: 201204
  3. WARFARIN [Concomitant]
     Dosage: UNK
  4. SOTALOL [Concomitant]
     Dosage: UNK
  5. DOXYCYCLINE [Concomitant]
     Dosage: UNK
  6. CALCIUM [Concomitant]
     Dosage: UNK
  7. ASPIRIN [Concomitant]
     Dosage: UNK

REACTIONS (3)
  - Atrial fibrillation [Recovered/Resolved]
  - Blood pressure decreased [Recovered/Resolved]
  - Asthenia [Recovered/Resolved]
